FAERS Safety Report 5616201-0 (Version None)
Quarter: 2008Q1

REPORT INFORMATION
  Report Type: 
  Country: None (occurrence: None)
  Receive Date: 20080206
  Receipt Date: 20080130
  Transmission Date: 20080703
  Serious: Yes (Congenital Anomaly)
  Sender: FDA-Public Use
  Company Number: FR-MERCK-0704FRA00063

PATIENT
  Age: 0 Day
  Sex: Male
  Weight: 3 kg

DRUGS (3)
  1. NOROXIN [Suspect]
     Indication: URINARY TRACT INFECTION
     Route: 064
     Dates: start: 20070406, end: 20070410
  2. PROGESTERONE [Concomitant]
     Route: 064
  3. HORMONES (UNSPECIFIED) [Concomitant]
     Route: 064

REACTIONS (1)
  - HYPOSPADIAS [None]
